FAERS Safety Report 14077013 (Version 7)
Quarter: 2018Q1

REPORT INFORMATION
  Report Type: Spontaneous
  Country: US (occurrence: US)
  Receive Date: 20171012
  Receipt Date: 20180124
  Transmission Date: 20180508
  Serious: Yes (Other)
  Sender: FDA-Public Use
  Company Number: US-HLSUS-2017-US-000668

PATIENT
  Age: 36 Year
  Sex: Female

DRUGS (2)
  1. TEVA-CLOZAPINE [Suspect]
     Active Substance: CLOZAPINE
     Dates: start: 2012
  2. CLOZARIL [Suspect]
     Active Substance: CLOZAPINE
     Indication: SCHIZOPHRENIA
     Dates: start: 199703

REACTIONS (20)
  - Splenomegaly [Unknown]
  - Constipation [Unknown]
  - Renal impairment [Unknown]
  - Salivary gland atrophy [Unknown]
  - Vomiting projectile [Unknown]
  - Idiopathic intracranial hypertension [Unknown]
  - Dental caries [Unknown]
  - Diabetes mellitus [Unknown]
  - Drooling [Recovered/Resolved]
  - Dry mouth [Not Recovered/Not Resolved]
  - Flatulence [None]
  - Diarrhoea [Not Recovered/Not Resolved]
  - Immunodeficiency [Unknown]
  - Weight increased [Unknown]
  - Dysarthria [Unknown]
  - Incontinence [Recovered/Resolved]
  - Dry eye [Unknown]
  - Tooth loss [Unknown]
  - Gastrointestinal disorder [Unknown]
  - Hyperhidrosis [Unknown]

NARRATIVE: CASE EVENT DATE: 2012
